FAERS Safety Report 23218120 (Version 1)
Quarter: 2023Q4

REPORT INFORMATION
  Report Type: Spontaneous
  Country: FR (occurrence: FR)
  Receive Date: 20231122
  Receipt Date: 20231122
  Transmission Date: 20240110
  Serious: Yes (Hospitalization, Other)
  Sender: FDA-Public Use
  Company Number: None

PATIENT
  Age: 6 Month
  Sex: Male
  Weight: 8.1 kg

DRUGS (9)
  1. VIGABATRIN [Suspect]
     Active Substance: VIGABATRIN
     Indication: Infantile spasms
     Dosage: 200 MGX2/DAY
     Route: 048
     Dates: start: 20230825, end: 20230826
  2. VIGABATRIN [Suspect]
     Active Substance: VIGABATRIN
     Dosage: 400 MGX2/DAY
     Route: 048
     Dates: start: 20230826, end: 20230901
  3. VIGABATRIN [Suspect]
     Active Substance: VIGABATRIN
     Dosage: 600 MGX2/DAY
     Route: 048
     Dates: start: 20230901, end: 20230911
  4. VIGABATRIN [Suspect]
     Active Substance: VIGABATRIN
     Dosage: 500 MGX2/DAY
     Route: 048
     Dates: start: 20230911, end: 20231007
  5. VIGABATRIN [Suspect]
     Active Substance: VIGABATRIN
     Dosage: 400 MGX2/DAY
     Route: 048
     Dates: start: 20231007, end: 20231020
  6. VIGABATRIN [Suspect]
     Active Substance: VIGABATRIN
     Dosage: 300 MGX2/DAY
     Route: 048
     Dates: start: 20231020, end: 20231024
  7. VIGABATRIN [Suspect]
     Active Substance: VIGABATRIN
     Dosage: 200 MGX2/DAY
     Route: 048
     Dates: start: 20231024, end: 20231026
  8. VIGABATRIN [Suspect]
     Active Substance: VIGABATRIN
     Dosage: 100 MGX2/DAY
     Route: 048
     Dates: start: 20231026, end: 20231028
  9. NEXIUM I.V. [Concomitant]
     Active Substance: ESOMEPRAZOLE SODIUM
     Indication: Product used for unknown indication
     Dosage: UNK
     Route: 065

REACTIONS (1)
  - Neutropenia [Recovered/Resolved]

NARRATIVE: CASE EVENT DATE: 20230101
